FAERS Safety Report 5963769-0 (Version None)
Quarter: 2008Q4

REPORT INFORMATION
  Report Type: 
  Country: None (occurrence: None)
  Receive Date: 20081121
  Receipt Date: 20081121
  Transmission Date: 20090506
  Serious: Yes (Life-Threatening, Hospitalization)
  Sender: FDA-Public Use
  Company Number: None

PATIENT
  Sex: Female
  Weight: 57.6068 kg

DRUGS (16)
  1. RIVASTIGMINE [Suspect]
     Indication: DEMENTIA
     Dosage: TRANSDERMAL
     Route: 062
  2. SIMVASTATIN [Concomitant]
  3. PRILOSEC [Concomitant]
  4. GABAPENTIN [Concomitant]
  5. ENALAPRIL MALEATE [Concomitant]
  6. ASPIRIN [Concomitant]
  7. CARVEDILOL [Concomitant]
  8. ISOSORBIDE MONONITRATE [Concomitant]
  9. DILTIAZEM HCL [Concomitant]
  10. INSULIN LEVEMIR [Concomitant]
  11. NOVOLOG [Concomitant]
  12. QUETIAPINE FUMARATE [Concomitant]
  13. ZOLPIDEM [Concomitant]
  14. METOCLOPRAMIDE [Concomitant]
  15. BISACODLY [Concomitant]
  16. MAALOX [Concomitant]

REACTIONS (11)
  - BLOOD PRESSURE DIASTOLIC DECREASED [None]
  - BRADYCARDIA [None]
  - CONFUSIONAL STATE [None]
  - DEPRESSED LEVEL OF CONSCIOUSNESS [None]
  - DISORIENTATION [None]
  - FAECAL INCONTINENCE [None]
  - FALL [None]
  - LOSS OF CONSCIOUSNESS [None]
  - MALAISE [None]
  - UNRESPONSIVE TO STIMULI [None]
  - URINARY INCONTINENCE [None]
